FAERS Safety Report 9626280 (Version 1)
Quarter: 2013Q4

REPORT INFORMATION
  Report Type: Spontaneous
  Country: US (occurrence: None)
  Receive Date: 20131015
  Receipt Date: 20131015
  Transmission Date: 20140711
  Serious: Yes (Other)
  Sender: FDA-Public Use
  Company Number: None

PATIENT
  Age: 65 Year
  Sex: Female
  Weight: 55.79 kg

DRUGS (7)
  1. EPINEPHRINE BITARTRATE\LIDOCAINE HYDROCHLORIDE [Suspect]
     Indication: SURGERY
     Dosage: 30 CC^S PRE OP, 30 CC^S POST
  2. GABAPENTIN 100 MG. CAPSULE [Concomitant]
  3. MULTI-VITAMIN [Concomitant]
  4. B VITAMIN [Concomitant]
  5. BONE RENEWAL [Concomitant]
  6. VITAMIN D [Concomitant]
  7. CELL PROTECTOR [Concomitant]

REACTIONS (3)
  - Injection site pain [None]
  - Burns second degree [None]
  - Injection site scar [None]
